FAERS Safety Report 18591293 (Version 2)
Quarter: 2020Q4

REPORT INFORMATION
  Report Type: Spontaneous
  Country: US (occurrence: US)
  Receive Date: 20201208
  Receipt Date: 20201208
  Transmission Date: 20210114
  Serious: No
  Sender: FDA-Public Use
  Company Number: US-NIPPON SHINYAKU-NIP-2020-000016

PATIENT
  Age: 8 Year
  Sex: Male
  Weight: 30.9 kg

DRUGS (2)
  1. VILTEPSO [Suspect]
     Active Substance: VILTOLARSEN
     Indication: DUCHENNE MUSCULAR DYSTROPHY
     Dosage: 2500 MILLIGRAM, QWK
     Route: 042
     Dates: start: 20201105, end: 20201105
  2. VILTEPSO [Suspect]
     Active Substance: VILTOLARSEN
     Dosage: 2500 MILLIGRAM, QWK (AT SLOWER RATE)
     Route: 042
     Dates: start: 20201105

REACTIONS (1)
  - Dizziness [Recovered/Resolved]

NARRATIVE: CASE EVENT DATE: 20201105
